FAERS Safety Report 4372777-5 (Version None)
Quarter: 2004Q2

REPORT INFORMATION
  Report Type: 
  Country: None (occurrence: None)
  Receive Date: 20040526
  Receipt Date: 20040511
  Transmission Date: 20050107
  Serious: Yes (Hospitalization)
  Sender: FDA-Public Use
  Company Number: M04-341-151

PATIENT
  Age: 62 Year
  Sex: Male

DRUGS (1)
  1. VELCADE [Suspect]
     Indication: MULTIPLE MYELOMA
     Dosage: 2.6 MG: INTRAVENOUS (NOT OTHERWISE SPECIFIED)
     Dates: start: 20040403, end: 20040423

REACTIONS (4)
  - DYSPNOEA [None]
  - RALES [None]
  - TACHYCARDIA [None]
  - WEIGHT DECREASED [None]
